FAERS Safety Report 14160941 (Version 1)
Quarter: 2017Q4

REPORT INFORMATION
  Report Type: Spontaneous
  Country: CA (occurrence: CA)
  Receive Date: 20171106
  Receipt Date: 20171106
  Transmission Date: 20180321
  Serious: Yes (Other)
  Sender: FDA-Public Use
  Company Number: CA-SHIRE-CA201728438

PATIENT

DRUGS (3)
  1. GAMMAGARD LIQUID [Suspect]
     Active Substance: HUMAN IMMUNOGLOBULIN G
     Dosage: 5G,1 VIAL
     Route: 042
     Dates: start: 20171010, end: 20171010
  2. GAMMAGARD LIQUID [Suspect]
     Active Substance: HUMAN IMMUNOGLOBULIN G
     Indication: PRODUCT USED FOR UNKNOWN INDICATION
     Dosage: 30 G,2 VIALS
     Route: 042
     Dates: start: 20171010, end: 20171010
  3. GAMMAGARD LIQUID [Suspect]
     Active Substance: HUMAN IMMUNOGLOBULIN G
     Dosage: 10 G, 1 VIAL
     Route: 042
     Dates: start: 20171010, end: 20171010

REACTIONS (2)
  - Pharyngeal oedema [Unknown]
  - Swollen tongue [Unknown]

NARRATIVE: CASE EVENT DATE: 20171010
